FAERS Safety Report 9157234 (Version 1)
Quarter: 2013Q1

REPORT INFORMATION
  Report Type: Spontaneous
  Country: US (occurrence: None)
  Receive Date: 20130308
  Receipt Date: 20130308
  Transmission Date: 20140127
  Serious: Yes (Other)
  Sender: FDA-Public Use
  Company Number: None

PATIENT
  Age: 72 Year
  Sex: Female
  Weight: 95.26 kg

DRUGS (1)
  1. TRACLEER [Suspect]
     Indication: PULMONARY HYPERTENSION
     Dates: start: 20130201, end: 20130215

REACTIONS (6)
  - Swelling face [None]
  - Eye swelling [None]
  - Vision blurred [None]
  - Local swelling [None]
  - Paraesthesia [None]
  - Blood glucose increased [None]
